FAERS Safety Report 6314370-0 (Version None)
Quarter: 2009Q3

REPORT INFORMATION
  Report Type: 
  Country: None (occurrence: None)
  Receive Date: 20090817
  Receipt Date: 20090805
  Transmission Date: 20100115
  Serious: Yes (Death, Hospitalization)
  Sender: FDA-Public Use
  Company Number: 2007-02311

PATIENT
  Age: 54 Year
  Sex: Male
  Weight: 66 kg

DRUGS (7)
  1. VELCADE [Suspect]
     Indication: MULTIPLE MYELOMA
     Dosage: 2.20 MG, INTRAVENOUS
     Route: 042
     Dates: start: 20070411, end: 20070802
  2. ALLOPURINOL [Concomitant]
  3. MAGNESIUM OXIDE (MAGNESIUM OXIDE) [Concomitant]
  4. GASMOTIN (MOSAPRIDE CITRATE) [Concomitant]
  5. ANTEBATE (BETAMETHASONE BUTYRATE PROPIONATE) [Concomitant]
  6. CLOBETASOL PROPIONATE [Concomitant]
  7. ALMETA (ALCLOMETASONE DIPROPIONATE) [Concomitant]

REACTIONS (13)
  - ABDOMINAL DISCOMFORT [None]
  - CONSTIPATION [None]
  - DECREASED APPETITE [None]
  - DEHYDRATION [None]
  - DIARRHOEA [None]
  - DISEASE PROGRESSION [None]
  - HYPOAESTHESIA [None]
  - MULTIPLE MYELOMA [None]
  - NEUTROPENIA [None]
  - PLATELET COUNT DECREASED [None]
  - PYREXIA [None]
  - RASH [None]
  - VOMITING [None]
